FAERS Safety Report 7607661-4 (Version None)
Quarter: 2011Q3

REPORT INFORMATION
  Report Type: 
  Country: None (occurrence: None)
  Receive Date: 20110713
  Receipt Date: 20110329
  Transmission Date: 20111222
  Serious: Yes (Other)
  Sender: FDA-Public Use
  Company Number: PHHY2011BR26448

PATIENT
  Age: 52 Year
  Sex: Female

DRUGS (2)
  1. TOFRANIL [Suspect]
  2. RITALIN [Suspect]

REACTIONS (2)
  - MENTAL DISORDER [None]
  - ASTHENIA [None]
